FAERS Safety Report 9360732 (Version 4)
Quarter: 2014Q2

REPORT INFORMATION
  Report Type: Report from Study
  Country: SK (occurrence: SK)
  Receive Date: 20130621
  Receipt Date: 20140404
  Transmission Date: 20141212
  Serious: Yes (Death)
  Sender: FDA-Public Use
  Company Number: SK-ROCHE-1239862

PATIENT
  Age: 49 Year
  Sex: Female
  Weight: 94.11 kg

DRUGS (10)
  1. RANIBIZUMAB [Suspect]
     Indication: DIABETIC RETINAL OEDEMA
     Dosage: 2.3 MG/ML
     Route: 050
     Dates: start: 20130411, end: 20130411
  2. PREDNISONE [Concomitant]
     Route: 065
     Dates: start: 1980
  3. IMURAN [Concomitant]
     Route: 065
     Dates: start: 1980
  4. LORISTA [Concomitant]
  5. THIOCTACID [Concomitant]
     Route: 065
     Dates: start: 2004
  6. LOMAC [Concomitant]
     Route: 065
     Dates: start: 2005
  7. DETRALEX [Concomitant]
     Route: 065
     Dates: start: 2005
  8. DOBICA [Concomitant]
  9. NOVORAPID [Concomitant]
  10. LANTUS [Concomitant]

REACTIONS (2)
  - Death [Fatal]
  - Acute myocardial infarction [Fatal]
